FAERS Safety Report 10161722 (Version 2)
Quarter: 2014Q2

REPORT INFORMATION
  Report Type: Spontaneous
  Country: HU (occurrence: HU)
  Receive Date: 20140509
  Receipt Date: 20140509
  Transmission Date: 20141212
  Serious: Yes (Life-Threatening, Hospitalization, Other)
  Sender: FDA-Public Use
  Company Number: HU-RANBAXY-2014RR-80509

PATIENT
  Age: 59 Year
  Sex: 0

DRUGS (10)
  1. METRONIDAZOLE [Suspect]
     Indication: PSEUDOMEMBRANOUS COLITIS
     Dosage: PERFUSION WITH UNK DOSAGE
     Route: 065
  2. VANCOMYCIN [Suspect]
     Indication: PSEUDOMEMBRANOUS COLITIS
     Dosage: 4 X 125 MG
     Route: 048
  3. VANCOMYCIN [Suspect]
     Indication: PSEUDOMEMBRANOUS COLITIS
     Dosage: 4 X 500 MG
     Route: 048
  4. SULFAMETHOXAZOL [Suspect]
     Indication: INFECTION
     Dosage: UNK
     Route: 065
  5. TRIMETHOPRIM [Suspect]
     Indication: INFECTION
     Dosage: UNK
     Route: 065
  6. CEFIXIME [Suspect]
     Indication: INFECTION
     Dosage: UNK
     Route: 065
  7. CIPROFLOXACIN [Suspect]
     Indication: INFECTION
     Dosage: UNK
     Route: 065
  8. NORFLOXACIN [Suspect]
     Indication: INFECTION
     Dosage: UNK
     Route: 065
  9. CEFTRIAXONE [Concomitant]
     Indication: NOSOCOMIAL INFECTION
     Dosage: UNK
     Route: 065
  10. AMIKACIN [Concomitant]
     Indication: NOSOCOMIAL INFECTION
     Dosage: UNK
     Route: 065

REACTIONS (11)
  - Drug ineffective [Recovered/Resolved]
  - Clostridium difficile colitis [Recovered/Resolved]
  - Drug eruption [Unknown]
  - Megacolon [Recovered/Resolved]
  - Acute prerenal failure [Recovered/Resolved]
  - Sepsis [Recovered/Resolved]
  - Pleural effusion [Recovered/Resolved]
  - Ileus paralytic [Recovered/Resolved]
  - Systemic inflammatory response syndrome [Recovered/Resolved]
  - Atelectasis [Recovered/Resolved]
  - Generalised oedema [Recovered/Resolved]
